FAERS Safety Report 23611352 (Version 2)
Quarter: 2024Q2

REPORT INFORMATION
  Report Type: Spontaneous
  Country: CN (occurrence: CN)
  Receive Date: 20240308
  Receipt Date: 20240409
  Transmission Date: 20240715
  Serious: Yes (Hospitalization)
  Sender: FDA-Public Use
  Company Number: CN-ELI_LILLY_AND_COMPANY-CN202402017239

PATIENT
  Age: 85 Year
  Sex: Female
  Weight: 49 kg

DRUGS (10)
  1. TERIPARATIDE [Suspect]
     Active Substance: TERIPARATIDE
     Indication: Osteoporosis
     Dosage: 20 UG, DAILY
     Route: 058
     Dates: start: 20240112, end: 20240303
  2. TERIPARATIDE [Suspect]
     Active Substance: TERIPARATIDE
     Indication: Osteoporosis
     Dosage: 20 UG, DAILY
     Route: 058
     Dates: start: 20240112, end: 20240303
  3. LIPITOR [Concomitant]
     Active Substance: ATORVASTATIN CALCIUM
     Indication: Hyperlipidaemia
     Dosage: UNK
     Dates: end: 20240217
  4. LIPITOR [Concomitant]
     Active Substance: ATORVASTATIN CALCIUM
     Indication: Arteriosclerosis
  5. PLAVIX [Concomitant]
     Active Substance: CLOPIDOGREL BISULFATE
     Indication: Arteriosclerosis
     Dosage: UNK
     Dates: end: 20240217
  6. PLAVIX [Concomitant]
     Active Substance: CLOPIDOGREL BISULFATE
     Indication: Hyperlipidaemia
  7. HERBALS [Concomitant]
     Active Substance: HERBALS
     Indication: Hyperlipidaemia
     Dosage: UNK
     Dates: end: 20240217
  8. HERBALS [Concomitant]
     Active Substance: HERBALS
     Indication: Arteriosclerosis
  9. CALTRATE [Concomitant]
     Active Substance: CALCIUM CARBONATE
     Indication: Product used for unknown indication
  10. CALCITRIOL [Concomitant]
     Active Substance: CALCITRIOL
     Indication: Product used for unknown indication

REACTIONS (9)
  - Myalgia [Recovering/Resolving]
  - Paralysis [Recovering/Resolving]
  - Dysstasia [Recovering/Resolving]
  - Gait inability [Recovering/Resolving]
  - Insomnia [Recovering/Resolving]
  - Muscular weakness [Recovering/Resolving]
  - Weight decreased [Recovering/Resolving]
  - Muscle spasms [Recovering/Resolving]
  - Product dose omission issue [Recovered/Resolved]

NARRATIVE: CASE EVENT DATE: 20240207
